FAERS Safety Report 21780433 (Version 1)
Quarter: 2022Q4

REPORT INFORMATION
  Report Type: Other
  Country: US (occurrence: None)
  Receive Date: 20221227
  Receipt Date: 20221227
  Transmission Date: 20230113
  Serious: Yes (Hospitalization)
  Sender: FDA-Public Use
  Company Number: US-Encube-000249

PATIENT
  Age: 7 Decade
  Sex: Male

DRUGS (3)
  1. TESTOSTERONE [Suspect]
     Active Substance: TESTOSTERONE
     Indication: Loss of libido
  2. ASPIRIN [Concomitant]
     Active Substance: ASPIRIN
     Indication: Polycythaemia
  3. TESTOSTERONE [Suspect]
     Active Substance: TESTOSTERONE
     Indication: Fatigue

REACTIONS (6)
  - Mesenteric vein thrombosis [Recovered/Resolved]
  - Thrombocytosis [Recovered/Resolved]
  - Thrombophlebitis [Recovered/Resolved]
  - Diverticulum intestinal [Recovered/Resolved]
  - Polycythaemia [Recovered/Resolved]
  - Off label use [Unknown]
